FAERS Safety Report 5954776-2 (Version None)
Quarter: 2008Q4

REPORT INFORMATION
  Report Type: 
  Country: None (occurrence: None)
  Receive Date: 20081113
  Receipt Date: 20081104
  Transmission Date: 20090506
  Serious: Yes (Other)
  Sender: FDA-Public Use
  Company Number: 100#08#2008-05596

PATIENT
  Age: 63 Year
  Sex: Female

DRUGS (4)
  1. IRINOTECAN HCL [Suspect]
     Indication: ADENOCARCINOMA
     Dosage: 520 MG, INTRAVENOUS (NOT OTHERWISE SPECIFIED)
     Route: 042
  2. ACEBUTOLOL [Concomitant]
  3. GRANISETRON  HCL [Concomitant]
  4. DEXAMETHASONE TAB [Concomitant]

REACTIONS (3)
  - CHOLINERGIC SYNDROME [None]
  - DYSARTHRIA [None]
  - NEUROTOXICITY [None]
